FAERS Safety Report 10832056 (Version 5)
Quarter: 2016Q2

REPORT INFORMATION
  Report Type: Spontaneous
  Country: US (occurrence: US)
  Receive Date: 20150219
  Receipt Date: 20160421
  Transmission Date: 20160815
  Serious: Yes (Hospitalization)
  Sender: FDA-Public Use
  Company Number: US-GLAXOSMITHKLINE-US2015GSK022200

PATIENT
  Sex: Female

DRUGS (4)
  1. FLOLAN [Suspect]
     Active Substance: EPOPROSTENOL SODIUM
     Indication: PULMONARY ARTERIAL HYPERTENSION
     Dosage: 12 NG/KG/MIN CONTINUOUSLY
     Route: 042
     Dates: start: 20150102
  2. FLOLAN [Suspect]
     Active Substance: EPOPROSTENOL SODIUM
     Dosage: 20 NG/KG/MIN CONTINUOUSLY; CONCENTRATION: 30,000 MG/ML; PUMP RATE: 84 ML/DAY; VIAL STRENGTH: 1.5 MG
     Route: 042
     Dates: start: 20150102
  3. FLOLAN [Suspect]
     Active Substance: EPOPROSTENOL SODIUM
     Dosage: 22 NG/KG/MIN, CONTINUOUSLY
     Dates: start: 20151002
  4. ADCIRCA [Concomitant]
     Active Substance: TADALAFIL

REACTIONS (10)
  - Cardiac discomfort [Unknown]
  - Heart rate irregular [Unknown]
  - Musculoskeletal pain [Unknown]
  - Catheter site erythema [Unknown]
  - Administration site erythema [Unknown]
  - Administration site pruritus [Unknown]
  - Pain in extremity [Unknown]
  - Catheter site swelling [Unknown]
  - Administration site rash [Unknown]
  - Catheter site haemorrhage [Unknown]
